FAERS Safety Report 25074650 (Version 1)
Quarter: 2025Q1

REPORT INFORMATION
  Report Type: Spontaneous
  Country: US (occurrence: None)
  Receive Date: 20250312
  Receipt Date: 20250312
  Transmission Date: 20250408
  Serious: Yes (Other)
  Sender: FDA-CTU
  Company Number: None

PATIENT
  Age: 39 Year
  Sex: Female
  Weight: 80.55 kg

DRUGS (5)
  1. HERBALS [Suspect]
     Active Substance: HERBALS
     Indication: Sinus disorder
     Dates: start: 20250312, end: 20250312
  2. HERBALS [Suspect]
     Active Substance: HERBALS
     Indication: Hypersensitivity
  3. Phetrimine [Concomitant]
  4. Progrestrone [Concomitant]
  5. VITAMINS [Concomitant]
     Active Substance: VITAMINS

REACTIONS (1)
  - Hypersensitivity [None]

NARRATIVE: CASE EVENT DATE: 20250312
